FAERS Safety Report 5379697-8 (Version None)
Quarter: 2007Q3

REPORT INFORMATION
  Report Type: 
  Country: None (occurrence: None)
  Receive Date: 20070706
  Receipt Date: 20070628
  Transmission Date: 20080115
  Serious: Yes (Other)
  Sender: FDA-Public Use
  Company Number: PHEH2007US08127

PATIENT
  Age: 93 Year
  Sex: Female

DRUGS (1)
  1. LOTREL [Suspect]
     Indication: HYPERTENSION
     Dosage: 5/20 MG, QD
     Route: 048
     Dates: start: 20020201, end: 20070527

REACTIONS (5)
  - COLON CANCER [None]
  - JOINT STIFFNESS [None]
  - MALAISE [None]
  - OEDEMA PERIPHERAL [None]
  - PALPITATIONS [None]
